FAERS Safety Report 6025402-1 (Version None)
Quarter: 2008Q4

REPORT INFORMATION
  Report Type: 
  Country: None (occurrence: None)
  Receive Date: 20081231
  Receipt Date: 20081216
  Transmission Date: 20090506
  Serious: Yes (Hospitalization)
  Sender: FDA-Public Use
  Company Number: US-CELGENEUS-163-21880-08111282

PATIENT
  Age: 69 Year
  Sex: Male
  Weight: 75.591 kg

DRUGS (20)
  1. REVLIMID [Suspect]
     Indication: NON-HODGKIN'S LYMPHOMA
     Route: 048
     Dates: start: 20081117, end: 20081119
  2. RITUXAN [Concomitant]
     Indication: NON-HODGKIN'S LYMPHOMA
     Route: 065
     Dates: start: 20080701
  3. ASPERCREME [Concomitant]
     Indication: PAIN
     Route: 061
  4. ASPERCREME [Concomitant]
  5. BENADRYL [Concomitant]
     Route: 048
  6. BENADRYL [Concomitant]
  7. CLARITIN-D [Concomitant]
     Indication: DRUG USE FOR UNKNOWN INDICATION
     Route: 065
  8. CYCLOBENZAPRINE HCL [Concomitant]
     Indication: DRUG USE FOR UNKNOWN INDICATION
     Route: 048
  9. FLOMAX [Concomitant]
     Indication: DRUG USE FOR UNKNOWN INDICATION
     Route: 048
     Dates: start: 20081119
  10. MULTIVITAMINS WITH B COMPLEX [Concomitant]
     Indication: DRUG USE FOR UNKNOWN INDICATION
     Route: 048
  11. PRILOSEC [Concomitant]
     Indication: REFLUX GASTRITIS
     Route: 048
     Dates: start: 20081119
  12. SENOKOT [Concomitant]
     Indication: CONSTIPATION
     Dosage: 1-2 TABLETS
     Route: 048
     Dates: start: 20081119
  13. SYNTHROID [Concomitant]
     Indication: THYROID DISORDER
     Route: 048
     Dates: start: 20081119
  14. PLAVIX [Concomitant]
     Indication: DRUG USE FOR UNKNOWN INDICATION
     Route: 048
  15. CELEBREX [Concomitant]
     Indication: DRUG USE FOR UNKNOWN INDICATION
     Route: 048
     Dates: start: 20081119
  16. TRAMADOL [Concomitant]
     Indication: DRUG USE FOR UNKNOWN INDICATION
     Route: 048
     Dates: start: 20081119
  17. ASPIRIN [Concomitant]
     Indication: DRUG USE FOR UNKNOWN INDICATION
     Route: 048
     Dates: start: 20081119
  18. PANTOPRAZOLE [Concomitant]
     Indication: DRUG USE FOR UNKNOWN INDICATION
     Route: 048
     Dates: start: 20081119
  19. ZITHROMAX [Concomitant]
     Route: 065
  20. ALLERGY TABLETS [Concomitant]
     Route: 048

REACTIONS (1)
  - SPEECH DISORDER [None]
